FAERS Safety Report 5564028-0 (Version None)
Quarter: 2007Q4

REPORT INFORMATION
  Report Type: 
  Country: None (occurrence: None)
  Receive Date: 20071217
  Receipt Date: 20071212
  Transmission Date: 20080405
  Serious: Yes (Death, Hospitalization, Other)
  Sender: FDA-Public Use
  Company Number: US-PFIZER INC-2007069576

PATIENT
  Sex: Male

DRUGS (1)
  1. BEXTRA [Suspect]
     Indication: NECK PAIN
     Route: 048
     Dates: start: 20031208, end: 20040609

REACTIONS (1)
  - ACUTE MYOCARDIAL INFARCTION [None]
